FAERS Safety Report 17139334 (Version 1)
Quarter: 2019Q4

REPORT INFORMATION
  Report Type: Spontaneous
  Country: DK (occurrence: DK)
  Receive Date: 20191211
  Receipt Date: 20191211
  Transmission Date: 20200122
  Serious: Yes (Life-Threatening, Hospitalization, Disabling, Other)
  Sender: FDA-Public Use
  Company Number: DK-BRISTOL-MYERS SQUIBB COMPANY-BMS-2019-117138

PATIENT
  Age: 66 Year
  Sex: Male

DRUGS (8)
  1. METOPROLOLSUCCINAT HEXAL [Concomitant]
     Active Substance: METOPROLOL SUCCINATE
     Indication: HEART RATE IRREGULAR
     Dosage: 100 MILLIGRAM, 1 DAY, STYRKE: 50 MG
     Route: 048
     Dates: start: 20190906
  2. KALIUMKLORID ORIFARM [Concomitant]
     Indication: MINERAL SUPPLEMENTATION
     Dosage: UNK, STYRKE: 750 MG VARIENNDE DOSIS
     Route: 048
     Dates: start: 20180920
  3. DIGOXIN DAK [Concomitant]
     Active Substance: DIGOXIN
     Indication: HEART RATE IRREGULAR
     Dosage: 250 MICROGRAM, 1 DAY, STYRKE: 250 MIKROGRAM
     Route: 048
     Dates: start: 20190906
  4. FUROSEMID HEXAL [Concomitant]
     Active Substance: FUROSEMIDE
     Indication: DIURETIC THERAPY
     Dosage: UNK, VARIATION I DOSIS OG STYRKE FRA 30-40 MG DAGLIGT.
     Route: 048
     Dates: start: 20180920
  5. HEXALACTON [Concomitant]
     Indication: OEDEMA
     Dosage: 100 MILLIGRAM, 1 DAY, STYRKE.: 100 MG
     Route: 048
     Dates: start: 20190907
  6. ELIQUIS [Suspect]
     Active Substance: APIXABAN
     Indication: EMBOLISM VENOUS
     Dosage: 10 MILLIGRAM, 1 DAY, STYRKE: 5 MG
     Route: 048
     Dates: start: 20190904, end: 20191121
  7. ENTOCORT [Concomitant]
     Active Substance: BUDESONIDE
     Indication: CROHN^S DISEASE
     Dosage: 3 MILLIGRAM, 1 DAY, STYRKE: 3 MG
     Route: 048
     Dates: start: 20130925
  8. DALACIN [CLINDAMYCIN HYDROCHLORIDE] [Concomitant]
     Active Substance: CLINDAMYCIN HYDROCHLORIDE
     Indication: ACNE
     Dosage: UNK, STYRKE: 10 MG/ML VARIATION I DOSIS FRA 1-2 GANGE DAGLIGT
     Route: 003
     Dates: start: 20190404

REACTIONS (5)
  - Erysipelas [Unknown]
  - Renal failure [Not Recovered/Not Resolved]
  - Gastrointestinal haemorrhage [Not Recovered/Not Resolved]
  - Haematoma [Recovered/Resolved with Sequelae]
  - Abscess limb [Recovered/Resolved with Sequelae]

NARRATIVE: CASE EVENT DATE: 201910
